FAERS Safety Report 16571667 (Version 2)
Quarter: 2019Q3

REPORT INFORMATION
  Report Type: Spontaneous
  Country: JP (occurrence: JP)
  Receive Date: 20190715
  Receipt Date: 20190806
  Transmission Date: 20191004
  Serious: Yes (Other)
  Sender: FDA-Public Use
  Company Number: JP-JNJFOC-20190709618

PATIENT
  Age: 78 Year
  Sex: Male

DRUGS (8)
  1. ISONIAZID. [Interacting]
     Active Substance: ISONIAZID
     Indication: PULMONARY TUBERCULOSIS
     Route: 065
  2. DAUNORUBICIN HYDROCHLORIDE. [Suspect]
     Active Substance: DAUNORUBICIN HYDROCHLORIDE
     Indication: ACUTE MYELOID LEUKAEMIA
     Route: 065
  3. RIFAMPICIN [Interacting]
     Active Substance: RIFAMPIN
     Indication: PULMONARY TUBERCULOSIS
     Route: 048
  4. ETHAMBUTOL HYDROCHLORIDE. [Interacting]
     Active Substance: ETHAMBUTOL HYDROCHLORIDE
     Indication: PULMONARY TUBERCULOSIS
     Route: 048
  5. ENOCITABINE [Concomitant]
     Active Substance: ENOCITABINE
     Indication: ACUTE MYELOID LEUKAEMIA
     Route: 041
  6. PYRAZINAMIDE. [Interacting]
     Active Substance: PYRAZINAMIDE
     Indication: PULMONARY TUBERCULOSIS
     Route: 048
  7. AZACITIDINE. [Concomitant]
     Active Substance: AZACITIDINE
     Indication: ACUTE MYELOID LEUKAEMIA
     Route: 065
  8. ITRIZOLE [Suspect]
     Active Substance: ITRACONAZOLE
     Indication: MENINGITIS FUNGAL
     Dosage: ITRACONAZOLE:50MG
     Route: 048

REACTIONS (4)
  - Cardiac arrest [Recovered/Resolved]
  - Ventricular tachycardia [Recovered/Resolved]
  - Atrioventricular block complete [Recovered/Resolved]
  - Drug interaction [Unknown]
